FAERS Safety Report 5075449-7 (Version None)
Quarter: 2006Q3

REPORT INFORMATION
  Report Type: 
  Country: None (occurrence: None)
  Receive Date: 20060809
  Receipt Date: 20060728
  Transmission Date: 20061208
  Serious: Yes (Hospitalization)
  Sender: FDA-Public Use
  Company Number: 2006AC01395

PATIENT
  Age: 12788 Day
  Sex: Female

DRUGS (6)
  1. SEROQUEL [Suspect]
     Indication: SCHIZOPHRENIA
     Dosage: 100 MG IN THE MORNING AND 200 MG IN THE EVENING
     Route: 048
     Dates: start: 20060606
  2. SEROQUEL [Suspect]
     Indication: ILL-DEFINED DISORDER
     Dosage: 100 MG IN THE MORNING AND 200 MG IN THE EVENING
     Route: 048
     Dates: start: 20060606
  3. DIAZEPAM [Concomitant]
  4. NITRAZEPAM [Concomitant]
  5. PANTOZOL [Concomitant]
  6. BIZALOCLYN [Concomitant]

REACTIONS (2)
  - CONSTIPATION [None]
  - ILEUS [None]
